FAERS Safety Report 6881964-3 (Version None)
Quarter: 2010Q3

REPORT INFORMATION
  Report Type: 
  Country: None (occurrence: None)
  Receive Date: 20100727
  Receipt Date: 20091116
  Transmission Date: 20110219
  Serious: No
  Sender: FDA-Public Use
  Company Number: US-MYLANLABS-2009S1019929

PATIENT
  Age: 72 Year
  Sex: Female
  Weight: 102.97 kg

DRUGS (1)
  1. BUSPIRONE HCL [Suspect]
     Indication: DEPRESSION
     Route: 048
     Dates: start: 20091103

REACTIONS (2)
  - HEADACHE [None]
  - NAUSEA [None]
